FAERS Safety Report 24941040 (Version 1)
Quarter: 2025Q1

REPORT INFORMATION
  Report Type: Spontaneous
  Country: DE (occurrence: DE)
  Receive Date: 20250207
  Receipt Date: 20250207
  Transmission Date: 20250409
  Serious: Yes (Hospitalization)
  Sender: NOVARTIS
  Company Number: DE-002147023-NVSC2025DE019739

PATIENT
  Age: 16 Year
  Sex: Male

DRUGS (1)
  1. IPTACOPAN [Suspect]
     Active Substance: IPTACOPAN
     Indication: C3 glomerulopathy
     Dosage: 200 MG, BID (2X)
     Route: 065
     Dates: start: 202409

REACTIONS (2)
  - Herpes zoster [Recovered/Resolved]
  - Off label use [Unknown]

NARRATIVE: CASE EVENT DATE: 20240101
